FAERS Safety Report 20548709 (Version 7)
Quarter: 2022Q3

REPORT INFORMATION
  Report Type: Report from Study
  Country: CN (occurrence: CN)
  Receive Date: 20220303
  Receipt Date: 20220707
  Transmission Date: 20221026
  Serious: Yes (Hospitalization)
  Sender: FDA-Public Use
  Company Number: CN-JNJFOC-20220250268

PATIENT
  Age: 58 Year
  Sex: Male
  Weight: 43 kg

DRUGS (48)
  1. AMIVANTAMAB [Suspect]
     Active Substance: AMIVANTAMAB
     Indication: Non-small cell lung cancer
     Dosage: DOSE: 1050, UNIT: NOT REPORTED
     Dates: start: 20211229, end: 20220208
  2. LINAGLIPTIN [Concomitant]
     Active Substance: LINAGLIPTIN
     Indication: Type 2 diabetes mellitus
     Route: 048
     Dates: start: 202009
  3. JARDIANCE [Concomitant]
     Active Substance: EMPAGLIFLOZIN
     Indication: Type 2 diabetes mellitus
     Route: 048
     Dates: start: 202009
  4. DEXAMETHASONE [Concomitant]
     Active Substance: DEXAMETHASONE
     Indication: Premedication
     Dates: start: 20211229, end: 20211230
  5. DEXAMETHASONE [Concomitant]
     Active Substance: DEXAMETHASONE
     Indication: Drug eruption
     Dates: start: 20220105, end: 20220126
  6. DEXAMETHASONE [Concomitant]
     Active Substance: DEXAMETHASONE
     Dates: start: 20220209, end: 20220209
  7. DEXAMETHASONE [Concomitant]
     Active Substance: DEXAMETHASONE
     Route: 061
     Dates: start: 20220219, end: 20220221
  8. PROMETHAZINE [Concomitant]
     Active Substance: PROMETHAZINE HYDROCHLORIDE
     Indication: Premedication
     Route: 030
     Dates: start: 20211229, end: 20211230
  9. PROMETHAZINE [Concomitant]
     Active Substance: PROMETHAZINE HYDROCHLORIDE
     Route: 030
     Dates: start: 20220105, end: 20220126
  10. PROMETHAZINE [Concomitant]
     Active Substance: PROMETHAZINE HYDROCHLORIDE
     Route: 030
     Dates: start: 20220105, end: 20220126
  11. PROMETHAZINE [Concomitant]
     Active Substance: PROMETHAZINE HYDROCHLORIDE
     Route: 030
     Dates: start: 20220209, end: 20220209
  12. PROMETHAZINE [Concomitant]
     Active Substance: PROMETHAZINE HYDROCHLORIDE
     Route: 030
     Dates: start: 20220209, end: 20220209
  13. DICLOFENAC [Concomitant]
     Active Substance: DICLOFENAC
     Indication: Premedication
     Route: 054
     Dates: start: 20211229, end: 20211230
  14. DICLOFENAC [Concomitant]
     Active Substance: DICLOFENAC
     Route: 054
     Dates: start: 20220105, end: 20220126
  15. DICLOFENAC [Concomitant]
     Active Substance: DICLOFENAC
     Route: 054
     Dates: start: 20220209, end: 20220209
  16. RABEPRAZOLE SODIUM [Concomitant]
     Active Substance: RABEPRAZOLE SODIUM
     Indication: Gastrointestinal disorder therapy
     Dates: start: 20211229, end: 20220102
  17. RABEPRAZOLE SODIUM [Concomitant]
     Active Substance: RABEPRAZOLE SODIUM
     Dates: start: 20220105, end: 20220126
  18. RABEPRAZOLE SODIUM [Concomitant]
     Active Substance: RABEPRAZOLE SODIUM
     Dates: start: 20220208, end: 20220211
  19. RABEPRAZOLE SODIUM [Concomitant]
     Active Substance: RABEPRAZOLE SODIUM
     Dates: start: 20220125, end: 20220125
  20. RABEPRAZOLE SODIUM [Concomitant]
     Active Substance: RABEPRAZOLE SODIUM
     Dates: start: 20220208, end: 20220208
  21. RABEPRAZOLE SODIUM [Concomitant]
     Active Substance: RABEPRAZOLE SODIUM
     Dates: start: 20220228, end: 20220302
  22. AMINO ACIDS [AMINO ACIDS NOS] [Concomitant]
     Indication: Nutritional supplementation
     Dates: start: 20211229, end: 20220103
  23. AMINO ACIDS [AMINO ACIDS NOS] [Concomitant]
     Dates: start: 20220112, end: 20220113
  24. AMINO ACIDS [AMINO ACIDS NOS] [Concomitant]
     Dates: start: 20220129, end: 20220129
  25. CLINDAMYCIN HYDROCHLORIDE [Concomitant]
     Active Substance: CLINDAMYCIN HYDROCHLORIDE
     Indication: Pruritus
     Dosage: DOSE:1, UNIT: OTHER
     Route: 061
     Dates: start: 20220108
  26. CLINDAMYCIN HYDROCHLORIDE [Concomitant]
     Active Substance: CLINDAMYCIN HYDROCHLORIDE
     Indication: Antiinflammatory therapy
     Route: 061
     Dates: start: 20220108, end: 20220317
  27. CLINDAMYCIN HYDROCHLORIDE [Concomitant]
     Active Substance: CLINDAMYCIN HYDROCHLORIDE
     Indication: Skin infection
  28. ETHYLENEDIAMINE DIACETURATE [Concomitant]
     Indication: Haemoptysis
     Dates: start: 20220125, end: 20220129
  29. ETHYLENEDIAMINE DIACETURATE [Concomitant]
     Dosage: 53
     Dates: start: 20220208, end: 20220211
  30. ETHYLENEDIAMINE DIACETURATE [Concomitant]
     Dates: start: 20220222, end: 20220225
  31. ETHYLENEDIAMINE DIACETURATE [Concomitant]
     Dates: start: 20220303, end: 20220305
  32. METHIOUINE AND VITAMIN B1 [Concomitant]
     Indication: Prophylaxis
     Dates: start: 20220125, end: 20220127
  33. METHIOUINE AND VITAMIN B1 [Concomitant]
     Dates: start: 20220228, end: 20220308
  34. ILAPRAZOLE [Concomitant]
     Active Substance: ILAPRAZOLE
     Indication: Prophylaxis against gastrointestinal ulcer
     Dates: start: 20220129, end: 20220129
  35. VITAMINS [Concomitant]
     Active Substance: VITAMINS
     Indication: Nutritional supplementation
     Dates: start: 20211229, end: 20220103
  36. VITAMINS [Concomitant]
     Active Substance: VITAMINS
     Dates: start: 20220112, end: 20220113
  37. VITAMINS [Concomitant]
     Active Substance: VITAMINS
     Dates: start: 20220125, end: 20220127
  38. VITAMINS [Concomitant]
     Active Substance: VITAMINS
     Dates: start: 20220129, end: 20220129
  39. VITAMINS [Concomitant]
     Active Substance: VITAMINS
     Dates: start: 20220208, end: 20220211
  40. VITAMINS [Concomitant]
     Active Substance: VITAMINS
     Dates: start: 20211129, end: 20211204
  41. OPRELVEKIN [Concomitant]
     Active Substance: OPRELVEKIN
     Indication: Skin ulcer
     Dosage: DOSE:1, UNIT: OTHER
     Route: 061
     Dates: start: 20220129, end: 20220217
  42. OPRELVEKIN [Concomitant]
     Active Substance: OPRELVEKIN
     Indication: Stomatitis
  43. MUCOPOLYSACCHARIDE POLYSULFATE [Concomitant]
     Indication: Prophylaxis
     Route: 061
     Dates: start: 20220103, end: 20220105
  44. UNSPECIFIED INGREDIENT [Concomitant]
     Active Substance: UNSPECIFIED INGREDIENT
     Indication: Nutritional supplementation
     Dates: start: 20211229, end: 20220103
  45. UNSPECIFIED INGREDIENT [Concomitant]
     Active Substance: UNSPECIFIED INGREDIENT
     Dates: start: 20220112, end: 20220113
  46. UNSPECIFIED INGREDIENT [Concomitant]
     Active Substance: UNSPECIFIED INGREDIENT
     Dates: start: 20220210, end: 20220211
  47. GLYCERIN\LECITHIN\MEDIUM-CHAIN TRIGLYCERIDES\SOYBEAN OIL [Concomitant]
     Active Substance: GLYCERIN\LECITHIN\MEDIUM-CHAIN TRIGLYCERIDES\SOYBEAN OIL
     Indication: Nutritional supplementation
     Dates: start: 20220301, end: 20220308
  48. ROXATIDINE ACETATE HYDROCHLORIDE [Concomitant]
     Active Substance: ROXATIDINE ACETATE HYDROCHLORIDE
     Indication: Prophylaxis
     Dates: start: 20220303, end: 20220308

REACTIONS (2)
  - Rash [Recovered/Resolved]
  - Hypoalbuminaemia [Recovered/Resolved]

NARRATIVE: CASE EVENT DATE: 20220131
